FAERS Safety Report 12504325 (Version 9)
Quarter: 2017Q1

REPORT INFORMATION
  Report Type: Spontaneous
  Country: US (occurrence: US)
  Receive Date: 20160628
  Receipt Date: 20170104
  Transmission Date: 20170428
  Serious: Yes (Hospitalization, Other)
  Sender: FDA-Public Use
  Company Number: US-PFIZER INC-2016320211

PATIENT
  Age: 78 Year
  Sex: Female
  Weight: 59 kg

DRUGS (17)
  1. OMEPRAZOLE. [Concomitant]
     Active Substance: OMEPRAZOLE
     Indication: GASTROOESOPHAGEAL REFLUX DISEASE
     Dosage: UNK
     Dates: start: 2000
  2. TOVIAZ [Suspect]
     Active Substance: FESOTERODINE FUMARATE
     Dosage: 8 MG
  3. BABY ASPIRIN [Concomitant]
     Active Substance: ASPIRIN
     Indication: EXERCISE LACK OF
     Dosage: 81 MG, 1X/DAY
  4. TOVIAZ [Suspect]
     Active Substance: FESOTERODINE FUMARATE
     Dosage: 8 MG, UNK
     Dates: start: 2015
  5. NEURONTIN [Concomitant]
     Active Substance: GABAPENTIN
     Indication: POST POLIO SYNDROME
     Dosage: 600 MG, 2X/DAY (2 CAPSULES IN THE MORNING AND 2 CAPSULES AT NIGHT.)
     Dates: start: 1990
  6. GABAPENTIN. [Concomitant]
     Active Substance: GABAPENTIN
     Indication: PAIN
     Dosage: 600 MG, 2X/DAY
     Dates: start: 1990
  7. CYMBALTA [Concomitant]
     Active Substance: DULOXETINE HYDROCHLORIDE
     Dosage: UNK
  8. TOVIAZ [Suspect]
     Active Substance: FESOTERODINE FUMARATE
     Indication: HYPERTONIC BLADDER
     Dosage: 8 MG, 1X/DAY
     Route: 048
     Dates: start: 2015, end: 201610
  9. DONEPEZIL. [Concomitant]
     Active Substance: DONEPEZIL
     Indication: POST POLIO SYNDROME
     Dosage: 10 MG, 1X/DAY
  10. MYRBETRIQ [Concomitant]
     Active Substance: MIRABEGRON
     Indication: URINARY INCONTINENCE
     Dosage: UNK
     Dates: start: 2015, end: 201607
  11. ASPIRIN. [Concomitant]
     Active Substance: ASPIRIN
     Indication: ANTICOAGULANT THERAPY
     Dosage: 81 MG, 1X/DAY
     Dates: start: 1990
  12. DULOXETINE. [Concomitant]
     Active Substance: DULOXETINE
     Indication: POST POLIO SYNDROME
     Dosage: 60 MG IN THE MORNING AND 30 MG IN THE EVENING
  13. LISINOPRIL. [Concomitant]
     Active Substance: LISINOPRIL
     Dosage: 60 MG, 1X/DAY (IN THE MORNING )
     Route: 048
  14. DULOXETINE. [Concomitant]
     Active Substance: DULOXETINE
     Indication: DEPRESSION
  15. TOVIAZ [Suspect]
     Active Substance: FESOTERODINE FUMARATE
     Dosage: UNK
     Dates: start: 2016
  16. PRILOSEC [Concomitant]
     Active Substance: OMEPRAZOLE MAGNESIUM
     Indication: GASTROOESOPHAGEAL REFLUX DISEASE
     Dosage: 20 MG, 2X/DAY
     Dates: start: 2000
  17. SIMVASTATIN. [Concomitant]
     Active Substance: SIMVASTATIN
     Dosage: 10 MG, ONE OR TWO A WEEK

REACTIONS (7)
  - Memory impairment [Not Recovered/Not Resolved]
  - Dry mouth [Not Recovered/Not Resolved]
  - Constipation [Not Recovered/Not Resolved]
  - Femur fracture [Recovered/Resolved]
  - Cognitive disorder [Not Recovered/Not Resolved]
  - Cystitis [Unknown]
  - Condition aggravated [Not Recovered/Not Resolved]

NARRATIVE: CASE EVENT DATE: 2015
